FAERS Safety Report 24771597 (Version 1)
Quarter: 2024Q4

REPORT INFORMATION
  Report Type: Spontaneous
  Country: US (occurrence: None)
  Receive Date: 20241224
  Receipt Date: 20241224
  Transmission Date: 20250115
  Serious: Yes (Death)
  Sender: Public
  Company Number: None

PATIENT
  Sex: Female

DRUGS (11)
  1. PROLIA [Suspect]
     Active Substance: DENOSUMAB
     Indication: Senile osteoporosis
     Dosage: OTHER FREQUENCY : EVERY6MONTHS;?
     Route: 058
     Dates: start: 20220111
  2. BONIVA TAB 150MG [Concomitant]
  3. CIPROFLOXACN TAB 500MG [Concomitant]
  4. EFFEXOR XR CAP 150MG [Concomitant]
  5. HYDROCO/APAP TAB 7.5-650 [Concomitant]
  6. HYDROXYCHLOROQUINE [Concomitant]
     Active Substance: HYDROXYCHLOROQUINE
  7. HYDROXYZ PAM CAP 50MG [Concomitant]
  8. METHOTREXATE [Concomitant]
     Active Substance: METHOTREXATE
  9. OXYCOD/APAP TAB 5-325MG [Concomitant]
  10. OXYCODONE TAB 10MG CR [Concomitant]
  11. PREDNISONE TAB5MG [Concomitant]

REACTIONS (1)
  - Death [None]
